FAERS Safety Report 18560917 (Version 34)
Quarter: 2025Q4

REPORT INFORMATION
  Report Type: Spontaneous
  Country: GB (occurrence: GB)
  Receive Date: 20201130
  Receipt Date: 20251223
  Transmission Date: 20260117
  Serious: Yes (Other)
  Sender: MYLAN
  Company Number: GB-PFIZER INC-2020422611

PATIENT
  Age: 36 Year
  Sex: Male

DRUGS (107)
  1. ATORVASTATIN [Suspect]
     Active Substance: ATORVASTATIN
     Indication: Product used for unknown indication
     Dosage: UNK
     Route: 061
  2. ATORVASTATIN [Suspect]
     Active Substance: ATORVASTATIN
     Dosage: UNK
     Route: 061
  3. AMLODIPINE BESYLATE [Suspect]
     Active Substance: AMLODIPINE BESYLATE
     Indication: Product used for unknown indication
     Dosage: UNK
     Route: 061
  4. AMLODIPINE BESYLATE [Suspect]
     Active Substance: AMLODIPINE BESYLATE
     Dosage: UNK
     Route: 061
  5. AMLODIPINE BESYLATE [Suspect]
     Active Substance: AMLODIPINE BESYLATE
     Dosage: UNK UNK, UNKNOWN FREQ.
     Route: 061
  6. FINASTERIDE\TAMSULOSIN [Suspect]
     Active Substance: FINASTERIDE\TAMSULOSIN
     Indication: Product used for unknown indication
     Dosage: UNK, FREQ
  7. FINASTERIDE\TAMSULOSIN [Suspect]
     Active Substance: FINASTERIDE\TAMSULOSIN
     Indication: Product used for unknown indication
     Dosage: UNK
     Route: 061
  8. FINASTERIDE\TAMSULOSIN [Suspect]
     Active Substance: FINASTERIDE\TAMSULOSIN
     Dosage: UNK
     Route: 061
  9. FINASTERIDE\TAMSULOSIN [Suspect]
     Active Substance: FINASTERIDE\TAMSULOSIN
     Dosage: UNK
  10. METFORMIN [Suspect]
     Active Substance: METFORMIN HYDROCHLORIDE
     Indication: Product used for unknown indication
     Dosage: UNK, FREQ
     Route: 061
  11. METFORMIN [Suspect]
     Active Substance: METFORMIN HYDROCHLORIDE
     Dosage: UNK
     Route: 061
  12. METFORMIN [Suspect]
     Active Substance: METFORMIN HYDROCHLORIDE
     Dosage: UNK
     Route: 061
  13. METFORMIN [Suspect]
     Active Substance: METFORMIN HYDROCHLORIDE
     Dosage: UNK, FREQ
     Route: 061
  14. METFORMIN [Suspect]
     Active Substance: METFORMIN HYDROCHLORIDE
     Dosage: UNK
     Route: 061
  15. METFORMIN [Suspect]
     Active Substance: METFORMIN HYDROCHLORIDE
     Dosage: UNK
     Route: 061
  16. METFORMIN [Suspect]
     Active Substance: METFORMIN HYDROCHLORIDE
     Dosage: UNK, UNKNOWN FREQ.
     Route: 061
  17. GLIMEPIRIDE [Suspect]
     Active Substance: GLIMEPIRIDE
     Indication: Product used for unknown indication
     Dosage: UNK, FREQ
     Route: 061
  18. GLIMEPIRIDE [Suspect]
     Active Substance: GLIMEPIRIDE
     Dosage: UNK, FREQ
     Route: 061
  19. GLIMEPIRIDE [Suspect]
     Active Substance: GLIMEPIRIDE
     Dosage: UNK, FREQ
     Route: 061
  20. GLIMEPIRIDE [Suspect]
     Active Substance: GLIMEPIRIDE
     Dosage: UNK, FREQ
     Route: 061
  21. GLIMEPIRIDE [Suspect]
     Active Substance: GLIMEPIRIDE
     Dosage: UNK, FREQ
     Route: 061
  22. GLIMEPIRIDE [Suspect]
     Active Substance: GLIMEPIRIDE
     Dosage: UNK, FREQ
  23. GLIMEPIRIDE [Suspect]
     Active Substance: GLIMEPIRIDE
     Dosage: UNK (TABLET)
     Route: 061
  24. GLIMEPIRIDE [Suspect]
     Active Substance: GLIMEPIRIDE
     Dosage: UNK, UNKNOWN FREQ.
     Route: 061
  25. TAMSULOSIN [Suspect]
     Active Substance: TAMSULOSIN
     Indication: Product used for unknown indication
     Dosage: UNK, FREQ
     Route: 061
  26. TAMSULOSIN [Suspect]
     Active Substance: TAMSULOSIN
     Dosage: UNK, FREQ
     Route: 061
  27. PIOGLITAZONE [Suspect]
     Active Substance: PIOGLITAZONE
     Indication: Product used for unknown indication
     Dosage: UNK, FREQ
     Route: 061
  28. PIOGLITAZONE [Suspect]
     Active Substance: PIOGLITAZONE
     Dosage: UNK
     Route: 061
  29. PIOGLITAZONE [Suspect]
     Active Substance: PIOGLITAZONE
     Dosage: UNK
     Route: 061
  30. PIOGLITAZONE [Suspect]
     Active Substance: PIOGLITAZONE
     Dosage: UNK, UNKNOWN FREQ.
  31. QUETIAPINE [Suspect]
     Active Substance: QUETIAPINE
     Indication: Product used for unknown indication
     Dosage: UNK, FREQ
     Route: 061
  32. QUETIAPINE [Suspect]
     Active Substance: QUETIAPINE
     Dosage: UNK
     Route: 061
  33. QUETIAPINE [Suspect]
     Active Substance: QUETIAPINE
     Dosage: UNK
     Route: 061
  34. QUETIAPINE [Suspect]
     Active Substance: QUETIAPINE
     Dosage: UNK
     Route: 061
  35. QUETIAPINE [Suspect]
     Active Substance: QUETIAPINE
     Dosage: UNK
     Route: 061
  36. QUETIAPINE [Suspect]
     Active Substance: QUETIAPINE
     Dosage: UNK
     Route: 061
  37. RAMIPRIL [Suspect]
     Active Substance: RAMIPRIL
     Indication: Product used for unknown indication
     Dosage: UNK, FREQ
     Route: 061
  38. RAMIPRIL [Suspect]
     Active Substance: RAMIPRIL
     Dosage: UNK
     Route: 061
  39. RAMIPRIL [Suspect]
     Active Substance: RAMIPRIL
     Dosage: UNK, FREQ
     Route: 061
  40. RAMIPRIL [Suspect]
     Active Substance: RAMIPRIL
     Dosage: UNK
     Route: 061
  41. RAMIPRIL [Suspect]
     Active Substance: RAMIPRIL
     Dosage: UNK, UNKNOWN FREQ.
     Route: 061
  42. AMLODIPINE [Suspect]
     Active Substance: AMLODIPINE BESYLATE
     Indication: Product used for unknown indication
     Dosage: UNK, FREQ
     Route: 061
  43. AMLODIPINE [Suspect]
     Active Substance: AMLODIPINE BESYLATE
     Dosage: UNK, FREQ
     Route: 061
  44. AMLODIPINE [Suspect]
     Active Substance: AMLODIPINE BESYLATE
     Dosage: UNK, FREQ
     Route: 061
  45. AMLODIPINE [Suspect]
     Active Substance: AMLODIPINE BESYLATE
     Dosage: UNK, FREQ
     Route: 061
  46. AMLODIPINE [Suspect]
     Active Substance: AMLODIPINE BESYLATE
     Dosage: UNK, FREQ
     Route: 061
  47. AMLODIPINE [Suspect]
     Active Substance: AMLODIPINE BESYLATE
     Dosage: UNK, FREQ
     Route: 061
  48. AMLODIPINE [Suspect]
     Active Substance: AMLODIPINE BESYLATE
     Dosage: UNK, FREQ
     Route: 061
  49. INDAPAMIDE [Suspect]
     Active Substance: INDAPAMIDE
     Indication: Product used for unknown indication
     Dosage: UNK, FREQ, (FILM-COATED TABLET)
     Route: 061
  50. INDAPAMIDE [Suspect]
     Active Substance: INDAPAMIDE
     Dosage: UNK
     Route: 061
  51. INDAPAMIDE [Suspect]
     Active Substance: INDAPAMIDE
     Dosage: UNK
  52. INDAPAMIDE [Suspect]
     Active Substance: INDAPAMIDE
     Dosage: UNK, UNKNOWN FREQ.
     Route: 061
  53. ATORVASTATIN [Suspect]
     Active Substance: ATORVASTATIN
     Indication: Product used for unknown indication
     Dosage: UNK, FREQ
     Route: 061
  54. ATORVASTATIN [Suspect]
     Active Substance: ATORVASTATIN
     Dosage: UNK, FREQ
     Route: 061
  55. ATORVASTATIN [Suspect]
     Active Substance: ATORVASTATIN
     Dosage: UNK, FREQ
     Route: 061
  56. ATORVASTATIN [Suspect]
     Active Substance: ATORVASTATIN
     Dosage: UNK, UNKNOWN FREQ.
     Route: 061
  57. ATORVASTATIN [Suspect]
     Active Substance: ATORVASTATIN
     Dosage: 80 MG
  58. ATORVASTATIN [Suspect]
     Active Substance: ATORVASTATIN
     Dosage: 40 MG
  59. ATORVASTATIN [Suspect]
     Active Substance: ATORVASTATIN
     Dosage: 60 MG
  60. ATORVASTATIN [Suspect]
     Active Substance: ATORVASTATIN
     Dosage: 10 MG
  61. ATORVASTATIN [Suspect]
     Active Substance: ATORVASTATIN
     Dosage: 20 MG
  62. CLOZAPINE [Suspect]
     Active Substance: CLOZAPINE
     Indication: Schizophrenia
     Dosage: UNK
     Route: 061
     Dates: start: 20181121, end: 20220317
  63. CLOZAPINE [Suspect]
     Active Substance: CLOZAPINE
     Dosage: UNK
     Route: 061
  64. CLOZAPINE [Suspect]
     Active Substance: CLOZAPINE
     Dosage: UNK
     Route: 061
  65. QUETIAPINE [Suspect]
     Active Substance: QUETIAPINE
     Indication: Product used for unknown indication
     Dosage: UNK
  66. QUETIAPINE [Suspect]
     Active Substance: QUETIAPINE
     Dosage: UNK
     Route: 061
  67. QUETIAPINE [Suspect]
     Active Substance: QUETIAPINE
     Indication: Product used for unknown indication
     Dosage: UNK, (PROLONGED RELEASE)
     Route: 061
  68. QUETIAPINE [Suspect]
     Active Substance: QUETIAPINE
     Indication: Product used for unknown indication
     Dosage: UNK, FREQ
  69. QUETIAPINE [Suspect]
     Active Substance: QUETIAPINE
     Dosage: UNK
  70. QUETIAPINE [Suspect]
     Active Substance: QUETIAPINE
     Dosage: UNK, UNKNOWN FREQ, PROLONGED RELEASE
     Route: 061
  71. FINASTERIDE [Suspect]
     Active Substance: FINASTERIDE
     Indication: Product used for unknown indication
     Dosage: UNK
  72. FINASTERIDE [Suspect]
     Active Substance: FINASTERIDE
     Indication: Product used for unknown indication
     Dosage: UNK
  73. FINASTERIDE [Suspect]
     Active Substance: FINASTERIDE
     Dosage: UNK
  74. FINASTERIDE [Suspect]
     Active Substance: FINASTERIDE
     Dosage: UNK
  75. METFORMIN [Suspect]
     Active Substance: METFORMIN HYDROCHLORIDE
     Indication: Product used for unknown indication
     Dosage: UNK
     Route: 061
  76. METFORMIN [Suspect]
     Active Substance: METFORMIN HYDROCHLORIDE
     Dosage: UNK
     Route: 061
  77. METFORMIN [Suspect]
     Active Substance: METFORMIN HYDROCHLORIDE
     Dosage: UNK
     Route: 061
  78. AMISULPRIDE [Suspect]
     Active Substance: AMISULPRIDE
     Indication: Product used for unknown indication
     Dosage: UNK
     Route: 061
  79. AMISULPRIDE [Suspect]
     Active Substance: AMISULPRIDE
     Dosage: UNK
  80. AMISULPRIDE [Suspect]
     Active Substance: AMISULPRIDE
     Dosage: UNK
     Route: 061
  81. AMISULPRIDE [Suspect]
     Active Substance: AMISULPRIDE
     Dosage: UNK
     Route: 061
  82. AMISULPRIDE [Suspect]
     Active Substance: AMISULPRIDE
     Dosage: UNK
     Route: 061
  83. AMISULPRIDE [Suspect]
     Active Substance: AMISULPRIDE
     Dosage: UNK
     Route: 061
  84. AMISULPRIDE [Suspect]
     Active Substance: AMISULPRIDE
     Dosage: UNK
  85. AMISULPRIDE [Suspect]
     Active Substance: AMISULPRIDE
     Dosage: UNK
     Route: 061
  86. QUETIAPINE [Suspect]
     Active Substance: QUETIAPINE
     Indication: Product used for unknown indication
     Dosage: UNK
     Route: 061
  87. TAMSULOSIN [Suspect]
     Active Substance: TAMSULOSIN
     Indication: Product used for unknown indication
     Dosage: UNK
  88. ATORVASTATIN CALCIUM [Suspect]
     Active Substance: ATORVASTATIN CALCIUM
     Indication: Product used for unknown indication
     Dosage: UNK
     Route: 061
  89. ATORVASTATIN CALCIUM [Suspect]
     Active Substance: ATORVASTATIN CALCIUM
     Dosage: UNK
     Route: 061
  90. QUETIAPINE FUMARATE [Suspect]
     Active Substance: QUETIAPINE FUMARATE
     Indication: Product used for unknown indication
     Dosage: UNK (PROLONGED RELEASE)
     Route: 061
  91. QUETIAPINE FUMARATE [Suspect]
     Active Substance: QUETIAPINE FUMARATE
     Dosage: UNK (PROLONGED RELEASE)
     Route: 061
  92. QUETIAPINE FUMARATE [Suspect]
     Active Substance: QUETIAPINE FUMARATE
     Dosage: UNK (PROLONGED RELEASE)
     Route: 061
  93. QUETIAPINE FUMARATE [Suspect]
     Active Substance: QUETIAPINE FUMARATE
     Dosage: UNK (PROLONGED RELEASE)
     Route: 061
  94. QUETIAPINE FUMARATE [Suspect]
     Active Substance: QUETIAPINE FUMARATE
     Dosage: UNK (PROLONGED RELEASE)
     Route: 061
  95. QUETIAPINE FUMARATE [Suspect]
     Active Substance: QUETIAPINE FUMARATE
     Dosage: UNK (PROLONGED RELEASE)
     Route: 061
  96. QUETIAPINE FUMARATE [Suspect]
     Active Substance: QUETIAPINE FUMARATE
     Dosage: UNK (PROLONGED RELEASE)
     Route: 061
  97. QUETIAPINE FUMARATE [Suspect]
     Active Substance: QUETIAPINE FUMARATE
     Dosage: UNK, PROLONGED RELEASE
     Route: 061
  98. ATORVASTATIN [Concomitant]
     Active Substance: ATORVASTATIN
     Indication: Product used for unknown indication
     Dosage: UNK
     Route: 061
  99. TAMSULOSIN [Concomitant]
     Active Substance: TAMSULOSIN
     Indication: Product used for unknown indication
     Dosage: UNK
  100. QUETIAPINE [Concomitant]
     Active Substance: QUETIAPINE
     Indication: Product used for unknown indication
     Dosage: UNK
     Route: 061
  101. QUETIAPINE [Concomitant]
     Active Substance: QUETIAPINE
     Dosage: UNK (PROLONGED RELEASE)
     Route: 061
  102. QUETIAPINE [Concomitant]
     Active Substance: QUETIAPINE
     Dosage: UNKNOWN, PROLONGED RELEASE
     Route: 061
  103. QUETIAPINE [Concomitant]
     Active Substance: QUETIAPINE
     Dosage: UNKNOWN, PROLONGED RELEASE
     Route: 061
  104. QUETIAPINE [Concomitant]
     Active Substance: QUETIAPINE
     Dosage: UNK (PROLONGED RELEASE)
     Route: 061
  105. QUETIAPINE [Concomitant]
     Active Substance: QUETIAPINE
     Dosage: UNK (PROLONGED RELEASE)
     Route: 061
  106. QUETIAPINE [Concomitant]
     Active Substance: QUETIAPINE
     Dosage: UNK (PROLONGED RELEASE)
     Route: 061
  107. QUETIAPINE [Concomitant]
     Active Substance: QUETIAPINE
     Dosage: UNK (PROLONGED RELEASE)
     Route: 061

REACTIONS (7)
  - Hallucination, visual [Unknown]
  - Type 2 diabetes mellitus [Unknown]
  - Hyperthyroidism [Unknown]
  - White blood cell count increased [Recovered/Resolved]
  - Influenza [Unknown]
  - Neutropenia [Recovered/Resolved]
  - White blood cell count decreased [Recovered/Resolved]

NARRATIVE: CASE EVENT DATE: 20200101
